FAERS Safety Report 20969999 (Version 1)
Quarter: 2022Q2

REPORT INFORMATION
  Report Type: Spontaneous
  Country: US (occurrence: US)
  Receive Date: 20220616
  Receipt Date: 20220616
  Transmission Date: 20220721
  Serious: No
  Sender: FDA-Public Use
  Company Number: US-SANOFI-01127944

PATIENT
  Sex: Male

DRUGS (1)
  1. LANTUS [Suspect]
     Active Substance: INSULIN GLARGINE
     Indication: Diabetes mellitus
     Dosage: DRUG STRUCTURE DOSAGE : 35 UNITS (70 UNITS TOTAL DAILY) DRUG INTERVAL DOSAGE : TWICE A DAY DRUG TREA

REACTIONS (1)
  - Inappropriate schedule of product administration [Unknown]
